FAERS Safety Report 8069768-X (Version None)
Quarter: 2012Q1

REPORT INFORMATION
  Report Type: 
  Country: None (occurrence: None)
  Receive Date: 20120125
  Receipt Date: 20120119
  Transmission Date: 20120608
  Serious: No
  Sender: FDA-Public Use
  Company Number: US-PFIZER INC-2012016547

PATIENT
  Age: 75 Year
  Sex: Female

DRUGS (4)
  1. ZITHROMAX [Suspect]
     Dosage: UNK
  2. AMBRISENTAN [Suspect]
     Dosage: 5 MG, UNK
     Route: 048
     Dates: start: 20110429
  3. HYDROCODONE [Suspect]
     Dosage: UNK
  4. PREDNISOLONE [Suspect]
     Dosage: UNK

REACTIONS (3)
  - CONFUSIONAL STATE [None]
  - HYPOAESTHESIA [None]
  - TREMOR [None]
